FAERS Safety Report 10240854 (Version 1)
Quarter: 2014Q1

REPORT INFORMATION
  Report Type: Spontaneous
  Country: US (occurrence: None)
  Receive Date: 20140306
  Receipt Date: 20140306
  Transmission Date: 20141002
  Serious: Yes (Hospitalization)
  Sender: FDA-Public Use
  Company Number: 163-21880-13040082

PATIENT
  Age: 73 Year
  Sex: Female

DRUGS (21)
  1. REVLIMID (LENALIDOMIDE) (15 MILLIGRAM, CAPSULES) [Suspect]
     Indication: PLASMA CELL MYELOMA
     Route: 048
     Dates: start: 201006
  2. AMITRIPTYLINE HCL (AMTRIPTYLINE HYDROCHLORIDE) (TABLETS) [Concomitant]
  3. ASPIRINE (ACETYLSALICYLIC ACID) (ENTERIC-COATED TABLET) [Concomitant]
  4. CALCIUM + D (OS-CAL) (CAPSULES) [Concomitant]
  5. CARVEDILOL (CARVEDILOL) (CAPSULES) [Concomitant]
  6. DEXAMETHASONE (DEXAMETHASONE) (4 MILLIGRAM, TABLETS) [Concomitant]
  7. DIPHENHYDRAMINE HCL (DIPHENHYDRAMINE HYDROCHLORIDE)(CAPSULES) [Concomitant]
  8. DURAGESIC (FENTANYL) (POULTICE OR PATCH) [Concomitant]
  9. GABAPENTIN (GABAPENTIN) (CAPSULES) [Concomitant]
  10. GLUCOSAMINE + CHONDROITIN (GLUCOSAMINE W/CHONDROITIN SULFATE) (CAPSULES) [Concomitant]
  11. KLOR-CON (POTASSIUM CHLORIDE) (TABLETS) [Concomitant]
  12. LEVOTHYROXINE SODIUM (LEVOTHYROXINE SODIUM) (TABLETS) [Concomitant]
  13. LIDODERM (LIDOCAINE) (POULTICE OR PATCH) [Concomitant]
  14. MEDROL DOSEPAK (METHYLPREDNISOLONE) (TABLETS) [Concomitant]
  15. MELATONIN (MELATONIN) (TABLETS) [Concomitant]
  16. MULTIVITAMIN WITH MINERALS (MULTIVITAMINS WITH MINERALS) (CAPSULES) [Concomitant]
  17. OMEPRAZOLE (OMEPRAZOLE) )CAPSULES) [Concomitant]
  18. OXYCODONE HCL (OXYCODONE HYDROCHLORIDE) (TABLETS) [Concomitant]
  19. PROMETHAZINE HCL (PROMETHAZINE HYDROCHLORIDE) (TABLETS) [Concomitant]
  20. VITAMIN C (ASCORBIC ACID) (TABLETS) [Concomitant]
  21. WARFARIN SODIUM (WARFARIN SODIUM) (3 MILLIGRAM, TABLETS) [Concomitant]

REACTIONS (3)
  - Thrombocytopenia [None]
  - Pneumonia [None]
  - Epistaxis [None]
